FAERS Safety Report 9115847 (Version 1)
Quarter: 2013Q1

REPORT INFORMATION
  Report Type: Spontaneous
  Country: US (occurrence: US)
  Receive Date: 20130225
  Receipt Date: 20130225
  Transmission Date: 20140127
  Serious: Yes (Hospitalization)
  Sender: FDA-Public Use
  Company Number: US-GLAXOSMITHKLINE-A1005788A

PATIENT
  Age: 76 Year
  Sex: Male

DRUGS (19)
  1. FLOLAN [Suspect]
     Indication: PRODUCT USED FOR UNKNOWN INDICATION
     Dosage: 5.9NGKM CONTINUOUS
     Route: 065
     Dates: start: 20121128
  2. COUMADIN [Suspect]
     Indication: PRODUCT USED FOR UNKNOWN INDICATION
  3. ONGLYZA [Concomitant]
  4. SYSTANE [Concomitant]
  5. GENTEAL [Concomitant]
     Route: 047
  6. ASPIRIN [Concomitant]
  7. GLIPIZIDE [Concomitant]
  8. VERAPAMIL [Concomitant]
  9. ZOFRAN [Concomitant]
  10. VITAMIN D [Concomitant]
  11. ALLOPURINOL [Concomitant]
  12. TYLENOL [Concomitant]
  13. VITAMIN B6 [Concomitant]
  14. TORSEMIDE [Concomitant]
  15. VITAMIN E [Concomitant]
  16. VITAMIN B12 [Concomitant]
  17. FISH OIL [Concomitant]
  18. MAGNESIUM [Concomitant]
  19. CO-ENZYME Q10 [Concomitant]

REACTIONS (14)
  - Renal failure [Unknown]
  - Diarrhoea [Unknown]
  - Local swelling [Unknown]
  - Renal disorder [Unknown]
  - Blood potassium abnormal [Unknown]
  - Constipation [Unknown]
  - Fluid retention [Unknown]
  - Flatulence [Unknown]
  - Back pain [Unknown]
  - Epistaxis [Unknown]
  - Pain in jaw [Unknown]
  - Incisional drainage [Unknown]
  - Fluid overload [Unknown]
  - Product quality issue [Unknown]
